FAERS Safety Report 20929064 (Version 4)
Quarter: 2022Q3

REPORT INFORMATION
  Report Type: Report from Study
  Country: JP (occurrence: JP)
  Receive Date: 20220608
  Receipt Date: 20220729
  Transmission Date: 20221027
  Serious: Yes (Hospitalization, Other)
  Sender: FDA-Public Use
  Company Number: JP-TAKEDA-2022TJP054672

PATIENT
  Age: 49 Year
  Sex: Female
  Weight: 65 kg

DRUGS (22)
  1. TEDUGLUTIDE [Suspect]
     Active Substance: TEDUGLUTIDE
     Indication: Short-bowel syndrome
     Dosage: UNK
     Route: 065
     Dates: start: 20211025
  2. TEDUGLUTIDE [Suspect]
     Active Substance: TEDUGLUTIDE
     Indication: Short-bowel syndrome
     Dosage: UNK
     Route: 065
     Dates: start: 20211025
  3. TEDUGLUTIDE [Suspect]
     Active Substance: TEDUGLUTIDE
     Indication: Short-bowel syndrome
     Dosage: UNK
     Route: 065
     Dates: start: 20211025
  4. TEDUGLUTIDE [Suspect]
     Active Substance: TEDUGLUTIDE
     Indication: Short-bowel syndrome
     Dosage: UNK
     Route: 065
     Dates: start: 20211025
  5. PENTASA [Concomitant]
     Active Substance: MESALAMINE
     Indication: Short-bowel syndrome
     Dosage: UNK
     Route: 065
  6. PENTASA [Concomitant]
     Active Substance: MESALAMINE
     Indication: Short-bowel syndrome
     Dosage: UNK
     Route: 065
  7. MIYA-BM [Concomitant]
     Active Substance: CLOSTRIDIUM BUTYRICUM SPORES STRAIN M-55
     Indication: Short-bowel syndrome
     Dosage: UNK
     Route: 065
  8. MERCAPTOPURINE [Concomitant]
     Active Substance: MERCAPTOPURINE
     Indication: Short-bowel syndrome
     Dosage: UNK
     Route: 065
  9. HUMIRA [Concomitant]
     Active Substance: ADALIMUMAB
     Indication: Short-bowel syndrome
     Dosage: UNK
     Route: 065
  10. BUDESONIDE [Concomitant]
     Active Substance: BUDESONIDE
     Indication: Short-bowel syndrome
     Dosage: UNK
     Route: 065
  11. SOYBEAN OIL [Concomitant]
     Active Substance: SOYBEAN OIL
     Indication: Short-bowel syndrome
     Dosage: UNK
     Route: 065
  12. RAMOSETRON HYDROCHLORIDE [Concomitant]
     Active Substance: RAMOSETRON HYDROCHLORIDE
     Dosage: UNK
     Route: 065
  13. RABEPRAZOLE SODIUM [Concomitant]
     Active Substance: RABEPRAZOLE SODIUM
     Dosage: UNK
     Route: 065
  14. HERBALS [Concomitant]
     Active Substance: HERBALS
     Dosage: UNK
     Route: 065
  15. POTASSIUM GLUCONATE [Concomitant]
     Active Substance: POTASSIUM GLUCONATE
     Dosage: UNK
     Route: 065
  16. HEPARINOID [Concomitant]
     Dosage: UNK
     Route: 065
  17. KETOPROFEN [Concomitant]
     Active Substance: KETOPROFEN
     Dosage: UNK
     Route: 065
  18. LOXOPROFEN SODIUM [Concomitant]
     Active Substance: LOXOPROFEN SODIUM
     Dosage: UNK
     Route: 065
  19. ELNEOPA NF NO.1 [Concomitant]
     Indication: Short-bowel syndrome
     Dosage: UNK
     Route: 065
  20. SODIUM CHLORIDE [Concomitant]
     Active Substance: SODIUM CHLORIDE
     Indication: Short-bowel syndrome
     Dosage: UNK
     Route: 065
  21. Aselend [Concomitant]
     Indication: Short-bowel syndrome
     Dosage: UNK
     Route: 065
  22. CEFAZOLIN SODIUM [Concomitant]
     Active Substance: CEFAZOLIN SODIUM
     Dosage: UNK
     Route: 065

REACTIONS (6)
  - Device related infection [Recovered/Resolved]
  - Vascular device occlusion [Recovered/Resolved]
  - Oedema [Recovered/Resolved]
  - Abdominal distension [Recovering/Resolving]
  - Vomiting [Recovering/Resolving]
  - Nausea [Recovering/Resolving]

NARRATIVE: CASE EVENT DATE: 20220122
